FAERS Safety Report 24282768 (Version 1)
Quarter: 2024Q3

REPORT INFORMATION
  Report Type: Spontaneous
  Country: US (occurrence: US)
  Receive Date: 20240904
  Receipt Date: 20240904
  Transmission Date: 20241017
  Serious: No
  Sender: PFIZER
  Company Number: US-PFIZER INC-202400247546

PATIENT
  Age: 84 Year
  Sex: Female

DRUGS (1)
  1. PAXLOVID [Suspect]
     Active Substance: NIRMATRELVIR\RITONAVIR
     Indication: COVID-19 treatment
     Dosage: UNK
     Dates: start: 202408, end: 20240820

REACTIONS (4)
  - Nausea [Unknown]
  - Asthenia [Unknown]
  - Decreased appetite [Unknown]
  - Feeling jittery [Unknown]

NARRATIVE: CASE EVENT DATE: 20240801
